FAERS Safety Report 14957068 (Version 2)
Quarter: 2018Q2

REPORT INFORMATION
  Report Type: Spontaneous
  Country: FR (occurrence: FR)
  Receive Date: 20180531
  Receipt Date: 20180607
  Transmission Date: 20180711
  Serious: Yes (Death, Other)
  Sender: FDA-Public Use
  Company Number: FR-BRISTOL-MYERS SQUIBB COMPANY-BMS-2018-030759

PATIENT
  Age: 85 Year

DRUGS (2)
  1. LOW MOLECULAR WEIGHT HEPARIN [Suspect]
     Active Substance: UNSPECIFIED INGREDIENT
     Indication: PROPHYLAXIS
     Dosage: 4000 IU, DAILY
     Route: 058
  2. ELIQUIS [Suspect]
     Active Substance: APIXABAN
     Indication: CEREBROVASCULAR ACCIDENT PROPHYLAXIS
     Dosage: 2.5 MG, PER DAY
     Route: 065

REACTIONS (9)
  - Cerebrovascular accident [Fatal]
  - Medication error [Unknown]
  - Haematoma [Unknown]
  - Prostatic disorder [Unknown]
  - Prescribed underdose [Unknown]
  - Product use issue [Unknown]
  - Haematuria [Unknown]
  - Urinary retention [Unknown]
  - Fall [Unknown]

NARRATIVE: CASE EVENT DATE: 20170901
